FAERS Safety Report 6360882-3 (Version None)
Quarter: 2009Q3

REPORT INFORMATION
  Report Type: 
  Country: None (occurrence: None)
  Receive Date: 20090918
  Receipt Date: 20090911
  Transmission Date: 20100115
  Serious: Yes (Other)
  Sender: FDA-Public Use
  Company Number: US-AMGEN-KDL363179

PATIENT
  Age: 70 Year
  Sex: Female
  Weight: 54 kg

DRUGS (12)
  1. ARANESP [Suspect]
     Indication: RENAL FAILURE CHRONIC
     Dates: start: 20081231
  2. ALTACE [Concomitant]
  3. LANOXIN [Concomitant]
  4. LEVOTHYROXINE SODIUM [Concomitant]
  5. COUMADIN [Concomitant]
  6. LASIX [Concomitant]
  7. ALDACTONE [Concomitant]
  8. ZOLOFT [Concomitant]
  9. ADVAIR HFA [Concomitant]
  10. PRILOSEC [Concomitant]
  11. PRO-AIR (PARKE DAVIS) [Concomitant]
  12. VENTOLIN [Concomitant]

REACTIONS (16)
  - ANISOCYTOSIS [None]
  - ASTHENIA [None]
  - CARDIAC PACEMAKER INSERTION [None]
  - CHEST DISCOMFORT [None]
  - CONTUSION [None]
  - DECREASED APPETITE [None]
  - DIZZINESS [None]
  - DYSPNOEA [None]
  - FATIGUE [None]
  - FLUID OVERLOAD [None]
  - HAEMATOCRIT DECREASED [None]
  - POLYCHROMASIA [None]
  - SINUSITIS [None]
  - SWELLING [None]
  - THERAPEUTIC RESPONSE DECREASED [None]
  - WEIGHT DECREASED [None]
